FAERS Safety Report 16778825 (Version 1)
Quarter: 2019Q3

REPORT INFORMATION
  Report Type: Spontaneous
  Country: FR (occurrence: FR)
  Receive Date: 20190906
  Receipt Date: 20190906
  Transmission Date: 20191005
  Serious: Yes (Death)
  Sender: FDA-Public Use
  Company Number: FR-AMGEN-FRASP2019141031

PATIENT
  Age: 70 Year
  Sex: Male
  Weight: 70 kg

DRUGS (1)
  1. NPLATE [Suspect]
     Active Substance: ROMIPLOSTIM
     Indication: IMMUNE THROMBOCYTOPENIC PURPURA
     Dosage: 1 DOSAGE FORM, QWK (500 MICROGRAM)
     Route: 058
     Dates: start: 20190507, end: 20190521

REACTIONS (2)
  - Condition aggravated [Fatal]
  - Antiphospholipid syndrome [Fatal]

NARRATIVE: CASE EVENT DATE: 20190527
